FAERS Safety Report 7543463-5 (Version None)
Quarter: 2011Q2

REPORT INFORMATION
  Report Type: 
  Country: None (occurrence: None)
  Receive Date: 20110613
  Receipt Date: 20110610
  Transmission Date: 20111010
  Serious: Yes (Hospitalization, Other)
  Sender: FDA-Public Use
  Company Number: US-UCBSA-034350

PATIENT
  Sex: Male
  Weight: 89 kg

DRUGS (10)
  1. ENBREL [Suspect]
     Dates: start: 20110428
  2. CIMZIA [Suspect]
     Indication: RHEUMATOID ARTHRITIS
     Route: 058
     Dates: start: 20100921, end: 20110408
  3. LEVOXYL [Concomitant]
     Route: 048
  4. PLETAL [Concomitant]
     Route: 048
  5. METHOTREXATE [Concomitant]
     Dosage: DOSE REPORTED AS 2.5, FREQUENCY REPORTED AS 6 ON MONDAY
     Route: 048
  6. PRILOSEC [Concomitant]
     Route: 048
  7. MECLOFENAMATE [Concomitant]
     Dosage: 100MG, 3 DAILY
     Route: 048
  8. ZOCOR [Concomitant]
     Route: 048
  9. QUINAPRIL HCL [Concomitant]
     Route: 048
  10. ASPIRIN [Concomitant]

REACTIONS (5)
  - BLOOD ALKALINE PHOSPHATASE INCREASED [None]
  - SPLENOMEGALY [None]
  - PANCREATITIS [None]
  - BICYTOPENIA [None]
  - DRUG INEFFECTIVE [None]
